FAERS Safety Report 4632845-7 (Version None)
Quarter: 2005Q1

REPORT INFORMATION
  Report Type: 
  Country: None (occurrence: None)
  Receive Date: 20050323
  Receipt Date: 20050323
  Transmission Date: 20050727
  Serious: No
  Sender: FDA-Public Use
  Company Number: None

PATIENT
  Age: 76 Year
  Sex: Female

DRUGS (7)
  1. AREDIA [Suspect]
  2. LIDOCAINE [Concomitant]
  3. AMOXICILLIN [Concomitant]
  4. CLINDAMYCIN [Concomitant]
  5. AUGMENTIN [Concomitant]
  6. PERIDEX [Concomitant]
  7. VICODIN [Concomitant]

REACTIONS (2)
  - JAW DISORDER [None]
  - OSTEONECROSIS [None]
